FAERS Safety Report 13314753 (Version 2)
Quarter: 2017Q2

REPORT INFORMATION
  Report Type: Spontaneous
  Country: US (occurrence: US)
  Receive Date: 20170309
  Receipt Date: 20170420
  Transmission Date: 20170830
  Serious: No
  Sender: FDA-Public Use
  Company Number: US-PFIZER INC-2017095109

PATIENT
  Sex: Female

DRUGS (1)
  1. NORPACE [Suspect]
     Active Substance: DISOPYRAMIDE PHOSPHATE
     Dosage: 100 MG, UNK

REACTIONS (1)
  - Drug ineffective [Unknown]
